FAERS Safety Report 6719766-0 (Version None)
Quarter: 2010Q2

REPORT INFORMATION
  Report Type: 
  Country: None (occurrence: None)
  Receive Date: 20100511
  Receipt Date: 20100430
  Transmission Date: 20101027
  Serious: Yes (Hospitalization)
  Sender: FDA-Public Use
  Company Number: A0858678A

PATIENT
  Age: 77 Year
  Sex: Female
  Weight: 70.5 kg

DRUGS (10)
  1. AVANDIA [Suspect]
     Dosage: 4MG TWICE PER DAY
     Route: 048
  2. TOPROL-XL [Concomitant]
  3. DIOVAN [Concomitant]
  4. ADVICOR [Concomitant]
  5. LASIX [Concomitant]
  6. CLONIDINE [Concomitant]
  7. ACYCLOVIR [Concomitant]
  8. METFORMIN HYDROCHLORIDE [Concomitant]
  9. LANTUS [Concomitant]
  10. PROCRIT [Concomitant]

REACTIONS (1)
  - ACUTE MYOCARDIAL INFARCTION [None]
